FAERS Safety Report 8129439-8 (Version None)
Quarter: 2012Q1

REPORT INFORMATION
  Report Type: 
  Country: None (occurrence: None)
  Receive Date: 20120210
  Receipt Date: 20120131
  Transmission Date: 20120608
  Serious: Yes (Life-Threatening, Hospitalization, Disabling)
  Sender: FDA-Public Use
  Company Number: JP-EISAI INC-E7389-01550-SPO-JP

PATIENT
  Age: 50 Year
  Sex: Female
  Weight: 58 kg

DRUGS (20)
  1. HALAVEN [Suspect]
     Indication: BREAST CANCER RECURRENT
     Route: 041
     Dates: start: 20110830, end: 20110920
  2. HALAVEN [Suspect]
     Indication: METASTASES TO BONE
  3. HALAVEN [Suspect]
  4. HALAVEN [Suspect]
  5. FEMARA [Concomitant]
     Indication: BREAST CANCER RECURRENT
  6. ALOXI [Concomitant]
     Indication: PROPHYLAXIS
  7. FAMOTIDINE [Concomitant]
     Indication: PROPHYLAXIS
  8. BETAMETHASONE [Concomitant]
  9. HALAVEN [Suspect]
     Indication: METASTASES TO LYMPH NODES
  10. HALAVEN [Suspect]
     Indication: METASTASES TO LIVER
  11. POLARAMINE [Concomitant]
     Indication: PROPHYLAXIS
  12. MAGNESIUM OXIDE [Concomitant]
  13. MEILAX [Concomitant]
  14. PURSENNID [Concomitant]
  15. OMEGACIN [Concomitant]
     Indication: PROPHYLAXIS
  16. HALAVEN [Suspect]
     Indication: METASTASES TO BREAST
  17. HALAVEN [Suspect]
  18. DECADRON [Concomitant]
     Indication: PROPHYLAXIS
  19. ZOMETA [Concomitant]
     Indication: PROPHYLAXIS
  20. CEFTAZIDIME SODIUM [Concomitant]
     Indication: PROPHYLAXIS

REACTIONS (5)
  - INTERSTITIAL LUNG DISEASE [None]
  - GAIT DISTURBANCE [None]
  - THROMBOTIC THROMBOCYTOPENIC PURPURA [None]
  - HYPOXIA [None]
  - THROMBOCYTOPENIA [None]
